FAERS Safety Report 7688901-2 (Version None)
Quarter: 2011Q3

REPORT INFORMATION
  Report Type: 
  Country: None (occurrence: None)
  Receive Date: 20110817
  Receipt Date: 20110803
  Transmission Date: 20111222
  Serious: Yes (Other)
  Sender: FDA-Public Use
  Company Number: PHHY2011BR70716

PATIENT
  Age: 61 Year
  Sex: Female

DRUGS (7)
  1. HEMAX [Concomitant]
     Indication: ANAEMIA
  2. METOPROLOL SUCCINATE [Concomitant]
     Indication: HYPERTENSION
     Dosage: 100 MG, (ONE TABLET A DAY)
  3. METOPROLOL SUCCINATE [Concomitant]
     Indication: HEART RATE
  4. SIMAVASTATIN [Concomitant]
     Indication: BLOOD CHOLESTEROL INCREASED
     Dosage: 20 MG, (ONE TABLET A DAY)
  5. PHENYTOIN [Concomitant]
     Indication: CONVULSION
     Dosage: 100 MG
  6. DEPAKENE [Concomitant]
     Indication: CONVULSION
     Dosage: 500 MG, (ONE TABLET ONCE A DAY)
  7. DIOVAN HCT [Suspect]
     Indication: HYPERTENSION
     Dosage: 1 DF, (320/25 MG A TABLET PER DAY)

REACTIONS (9)
  - AGITATION [None]
  - CONVULSION [None]
  - DISORIENTATION [None]
  - TREMOR [None]
  - FEELING ABNORMAL [None]
  - EATING DISORDER [None]
  - DEMENTIA [None]
  - DEMENTIA ALZHEIMER'S TYPE [None]
  - ANAEMIA [None]
